FAERS Safety Report 5907259-X (Version None)
Quarter: 2008Q4

REPORT INFORMATION
  Report Type: 
  Country: None (occurrence: None)
  Receive Date: 20081003
  Receipt Date: 20080929
  Transmission Date: 20090506
  Serious: Yes (Death)
  Sender: FDA-Public Use
  Company Number: PHHY2008CA22473

PATIENT

DRUGS (2)
  1. DIOVAN [Suspect]
     Dosage: UNK
  2. DIOVAN [Suspect]
     Dosage: 160 MG, UNK
     Dates: start: 20080917

REACTIONS (1)
  - DEATH [None]
